FAERS Safety Report 6610896-0 (Version None)
Quarter: 2010Q1

REPORT INFORMATION
  Report Type: 
  Country: None (occurrence: None)
  Receive Date: 20100219
  Receipt Date: 20100203
  Transmission Date: 20100710
  Serious: Yes (Death, Other)
  Sender: FDA-Public Use
  Company Number: AUR-APL-2010-00375

PATIENT
  Age: 27 Year
  Sex: Female

DRUGS (4)
  1. AMOXICILLIN [Suspect]
     Indication: MALAISE
     Dosage: 500MG,
  2. AMOXICILLIN [Suspect]
     Indication: PYREXIA
     Dosage: 500MG,
  3. MINOCYCLINE HCL [Suspect]
     Dosage: 100MG, DAILY,
     Dates: start: 20080528, end: 20080616
  4. ERYTHROMYCIN [Concomitant]

REACTIONS (15)
  - ABDOMINAL PAIN [None]
  - ACIDOSIS [None]
  - ACUTE HEPATIC FAILURE [None]
  - COMPLICATIONS OF TRANSPLANTED LIVER [None]
  - DIARRHOEA [None]
  - DRUG HYPERSENSITIVITY [None]
  - DYSPNOEA [None]
  - HAEMOPTYSIS [None]
  - HEPATIC NECROSIS [None]
  - LIVER TRANSPLANT [None]
  - MULTI-ORGAN FAILURE [None]
  - MYALGIA [None]
  - PLEURITIC PAIN [None]
  - PYREXIA [None]
  - VIRAL INFECTION [None]
